FAERS Safety Report 20987823 (Version 5)
Quarter: 2022Q3

REPORT INFORMATION
  Report Type: Spontaneous
  Country: DE (occurrence: DE)
  Receive Date: 20220621
  Receipt Date: 20220708
  Transmission Date: 20221027
  Serious: Yes (Other)
  Sender: FDA-Public Use
  Company Number: DE-PFIZER INC-PV202200001039

PATIENT
  Age: 32 Year
  Sex: Male

DRUGS (9)
  1. CLOZAPINE [Suspect]
     Active Substance: CLOZAPINE
     Indication: Hallucination, visual
     Dosage: UNK
  2. ZIPRASIDONE HYDROCHLORIDE [Suspect]
     Active Substance: ZIPRASIDONE HYDROCHLORIDE
     Indication: Schizophrenia
     Dosage: UNK
  3. AMISULPRIDE [Suspect]
     Active Substance: AMISULPRIDE
     Indication: Schizophrenia
     Dosage: UNK
  4. RISPERIDONE [Suspect]
     Active Substance: RISPERIDONE
     Indication: Schizophreniform disorder
     Dosage: UNK
  5. QUETIAPINE [Suspect]
     Active Substance: QUETIAPINE
     Indication: Schizophrenia
     Dosage: UNK
  6. ARIPIPRAZOLE [Suspect]
     Active Substance: ARIPIPRAZOLE
     Indication: Schizophrenia
     Dosage: UNK
  7. PERAZINE [Suspect]
     Active Substance: PERAZINE
     Indication: Schizophrenia
     Dosage: UNK
  8. PROMETHAZINE [Suspect]
     Active Substance: PROMETHAZINE HYDROCHLORIDE
     Indication: Schizophrenia
     Dosage: UNK
  9. HALOPERIDOL [Suspect]
     Active Substance: HALOPERIDOL
     Indication: Schizophrenia
     Dosage: UNK

REACTIONS (3)
  - Drug ineffective [Unknown]
  - Akathisia [Recovering/Resolving]
  - Extrapyramidal disorder [Recovered/Resolved]
